FAERS Safety Report 8606817 (Version 3)
Quarter: 2014Q1

REPORT INFORMATION
  Report Type: Spontaneous
  Country: US (occurrence: US)
  Receive Date: 20120611
  Receipt Date: 20140109
  Transmission Date: 20141002
  Serious: Yes (Hospitalization, Disabling, Other)
  Sender: FDA-Public Use
  Company Number: US-ASTRAZENECA-2012SE35257

PATIENT
  Age: 590 Month
  Sex: Female

DRUGS (35)
  1. NEXIUM [Suspect]
     Indication: GASTROOESOPHAGEAL REFLUX DISEASE
     Dosage: ONCE A DAY IN THE MORNING
     Route: 048
  2. NEXIUM [Suspect]
     Indication: DYSPEPSIA
     Dosage: ONCE A DAY IN THE MORNING
     Route: 048
  3. NEXIUM [Suspect]
     Indication: GASTROOESOPHAGEAL REFLUX DISEASE
     Route: 048
     Dates: start: 2000, end: 2013
  4. NEXIUM [Suspect]
     Indication: DYSPEPSIA
     Route: 048
     Dates: start: 2000, end: 2013
  5. NEXIUM [Suspect]
     Indication: GASTROOESOPHAGEAL REFLUX DISEASE
     Route: 048
     Dates: start: 20030403
  6. NEXIUM [Suspect]
     Indication: DYSPEPSIA
     Route: 048
     Dates: start: 20030403
  7. PRILOSEC OTC [Suspect]
     Route: 048
  8. PREVACID [Concomitant]
     Dosage: DAILY
     Route: 048
  9. ZEGERID OTC [Concomitant]
  10. TREVACID [Concomitant]
  11. TAGAMET [Concomitant]
     Route: 048
  12. TUMS [Concomitant]
  13. ROLAIDS [Concomitant]
  14. MYLANTA [Concomitant]
  15. MILK OF MAGNESIA [Concomitant]
  16. PEPTO BISMOL [Concomitant]
  17. POTASSIUM [Concomitant]
     Indication: SUPPLEMENTATION THERAPY
  18. LASIX [Concomitant]
     Indication: DIURETIC THERAPY
  19. LISINOPRIL [Concomitant]
     Indication: BLOOD PRESSURE ABNORMAL
  20. AMLODIPINE [Concomitant]
     Indication: BLOOD PRESSURE ABNORMAL
  21. CYCLOBENZAPRINE [Concomitant]
     Indication: MUSCLE RELAXANT THERAPY
  22. ALLEGRA [Concomitant]
     Indication: MULTIPLE ALLERGIES
  23. PREMARIN [Concomitant]
     Indication: HORMONE REPLACEMENT THERAPY
  24. ADVAIR [Concomitant]
     Indication: CHRONIC OBSTRUCTIVE PULMONARY DISEASE
  25. METFORMIN [Concomitant]
     Indication: DIABETES MELLITUS
  26. ALBUTEROL [Concomitant]
     Indication: CHRONIC OBSTRUCTIVE PULMONARY DISEASE
  27. NASACORT [Concomitant]
     Indication: MULTIPLE ALLERGIES
  28. NIFEDIAC [Concomitant]
     Indication: BLOOD PRESSURE ABNORMAL
  29. HYDROCODONE [Concomitant]
     Indication: PAIN
  30. ROBAXIN [Concomitant]
     Indication: MYALGIA
  31. LABETALOL [Concomitant]
     Indication: HYPERTENSION
  32. SPIRIVA [Concomitant]
     Indication: CHRONIC OBSTRUCTIVE PULMONARY DISEASE
  33. ALKA-SELTZER [Concomitant]
  34. ZANTAC [Concomitant]
     Route: 048
  35. TAZAC [Concomitant]

REACTIONS (10)
  - Back disorder [Unknown]
  - Spinal osteoarthritis [Unknown]
  - Cervical radiculopathy [Unknown]
  - Osteoporosis [Unknown]
  - Arthritis [Unknown]
  - Multiple fractures [Unknown]
  - Bone disorder [Unknown]
  - Rheumatoid arthritis [Unknown]
  - Intervertebral disc protrusion [Unknown]
  - Depression [Unknown]
